FAERS Safety Report 4539929-2 (Version None)
Quarter: 2004Q4

REPORT INFORMATION
  Report Type: 
  Country: None (occurrence: None)
  Receive Date: 20041223
  Receipt Date: 20041213
  Transmission Date: 20050328
  Serious: Yes (Hospitalization)
  Sender: FDA-Public Use
  Company Number: 2004AC01028

PATIENT
  Age: 56 Year
  Sex: Male
  Weight: 85 kg

DRUGS (5)
  1. CRESTOR [Suspect]
     Dosage: 10 MG PO
     Route: 048
     Dates: start: 20040601
  2. NOVONORM [Concomitant]
  3. INSULATARD NPH HUMAN [Concomitant]
  4. GLUCOPHAGE [Concomitant]
  5. COVERSYL [Concomitant]

REACTIONS (4)
  - CHOLESTASIS [None]
  - DILATATION INTRAHEPATIC DUCT ACQUIRED [None]
  - LIPASE INCREASED [None]
  - SCRATCH [None]
